FAERS Safety Report 5808452-7 (Version None)
Quarter: 2008Q3

REPORT INFORMATION
  Report Type: 
  Country: None (occurrence: None)
  Receive Date: 20080710
  Receipt Date: 20080710
  Transmission Date: 20090109
  Serious: No
  Sender: FDA-Public Use
  Company Number: None

PATIENT
  Sex: Male
  Weight: 100.6985 kg

DRUGS (2)
  1. LIPITOR [Suspect]
     Indication: HYPERLIPIDAEMIA
     Dosage: 20 MG ONCE PO QD
     Route: 048
     Dates: start: 20060810, end: 20070821
  2. VYTORIN [Suspect]
     Dosage: 10/80MG ONCE PO QD
     Route: 048
     Dates: start: 20070821, end: 20080708

REACTIONS (2)
  - MUSCLE SPASMS [None]
  - MYALGIA [None]
